FAERS Safety Report 8617932-0 (Version None)
Quarter: 2012Q3

REPORT INFORMATION
  Report Type: 
  Country: None (occurrence: None)
  Receive Date: 20120824
  Receipt Date: 20120309
  Transmission Date: 20120928
  Serious: No
  Sender: FDA-Public Use
  Company Number: US-ASTRAZENECA-2012SE16580

PATIENT
  Age: 67 Year
  Sex: Female
  Weight: 39.5 kg

DRUGS (2)
  1. OSTEOPOROSIS DRUGS [Concomitant]
  2. SYMBICORT [Suspect]
     Indication: CHRONIC OBSTRUCTIVE PULMONARY DISEASE
     Dosage: 2 PUFFS, BID
     Route: 055
     Dates: start: 20120303

REACTIONS (6)
  - DYSPNOEA [None]
  - POLLAKIURIA [None]
  - THIRST [None]
  - NERVOUSNESS [None]
  - HEART RATE INCREASED [None]
  - DIZZINESS [None]
